FAERS Safety Report 15841170 (Version 2)
Quarter: 2019Q4

REPORT INFORMATION
  Report Type: Spontaneous
  Country: US (occurrence: US)
  Receive Date: 20190118
  Receipt Date: 20191105
  Transmission Date: 20200122
  Serious: Yes (Other)
  Sender: FDA-Public Use
  Company Number: US-AMGEN-USASP2019008037

PATIENT
  Age: 26 Year
  Sex: Male

DRUGS (5)
  1. ALBENDAZOLE. [Concomitant]
     Active Substance: ALBENDAZOLE
     Dosage: UNK
     Dates: start: 20100730, end: 20100912
  2. ETANERCEPT [Suspect]
     Active Substance: ETANERCEPT
     Dosage: 25 MG, QWK
     Route: 065
  3. METHOTREXATE. [Concomitant]
     Active Substance: METHOTREXATE
     Dosage: UNK
  4. ETANERCEPT [Suspect]
     Active Substance: ETANERCEPT
     Indication: INFLAMMATION
     Dosage: 25 MILLIGRAM, QWK
     Route: 065
  5. PRAZIQUANTEL. [Concomitant]
     Active Substance: PRAZIQUANTEL
     Dosage: UNK

REACTIONS (7)
  - Limb crushing injury [Recovered/Resolved]
  - Hydrocephalus [Unknown]
  - Off label use [Unknown]
  - Arachnoid cyst [Recovered/Resolved]
  - Shunt malfunction [Unknown]
  - Neck crushing [Recovered/Resolved]
  - Cerebral cyst [Recovered/Resolved]

NARRATIVE: CASE EVENT DATE: 200803
